FAERS Safety Report 18565388 (Version 4)
Quarter: 2024Q4

REPORT INFORMATION
  Report Type: Spontaneous
  Country: US (occurrence: US)
  Receive Date: 20201201
  Receipt Date: 20241227
  Transmission Date: 20250114
  Serious: No
  Sender: PFIZER
  Company Number: US-PFIZER INC-2020473392

PATIENT
  Age: 64 Year
  Sex: Female
  Weight: 68.934 kg

DRUGS (5)
  1. XELJANZ [Suspect]
     Active Substance: TOFACITINIB CITRATE
     Indication: Raynaud^s phenomenon
     Dosage: 5 MG, 2X/DAY (TWICE A DAY)
     Route: 048
  2. XELJANZ [Suspect]
     Active Substance: TOFACITINIB CITRATE
     Indication: Upper respiratory tract infection
  3. XELJANZ [Suspect]
     Active Substance: TOFACITINIB CITRATE
     Indication: Senile osteoporosis
  4. XELJANZ [Suspect]
     Active Substance: TOFACITINIB CITRATE
     Indication: Rheumatoid arthritis
  5. XELJANZ [Suspect]
     Active Substance: TOFACITINIB CITRATE
     Indication: SLE arthritis

REACTIONS (3)
  - Headache [Unknown]
  - Abdominal discomfort [Unknown]
  - Condition aggravated [Unknown]
